FAERS Safety Report 6376367-4 (Version None)
Quarter: 2009Q3

REPORT INFORMATION
  Report Type: 
  Country: None (occurrence: None)
  Receive Date: 20090925
  Receipt Date: 20090917
  Transmission Date: 20100115
  Serious: Yes (Other)
  Sender: FDA-Public Use
  Company Number: AU-WYE-G04458009

PATIENT
  Age: 54 Year
  Sex: Female

DRUGS (10)
  1. EFFEXOR XR [Suspect]
     Indication: DEPRESSION
     Dosage: 75MG DAILY
     Dates: start: 20090615
  2. COVERSYL [Concomitant]
     Dosage: 5MG DAILY
  3. BISOPROLOL FUMARATE [Concomitant]
     Dosage: 2.5MG DAILY
  4. NEXIUM [Concomitant]
     Indication: REFLUX OESOPHAGITIS
     Dosage: 40MG
  5. DERALIN [Concomitant]
     Indication: MIGRAINE
  6. ISCOVER [Concomitant]
     Dosage: 75MG DAILY
  7. CRESTOR [Concomitant]
     Dosage: 10MG DAILY
  8. IRON [Concomitant]
  9. CARDIZEM [Concomitant]
     Dosage: 180MG DAILY
  10. EPILIM [Concomitant]
     Indication: PAIN
     Dosage: 1000MG DAILY

REACTIONS (8)
  - BLOOD PRESSURE INCREASED [None]
  - CHEST PAIN [None]
  - DYSPNOEA [None]
  - HYPERHIDROSIS [None]
  - LETHARGY [None]
  - NAUSEA [None]
  - RASH PRURITIC [None]
  - SWELLING [None]
